FAERS Safety Report 17797292 (Version 1)
Quarter: 2020Q2

REPORT INFORMATION
  Report Type: Spontaneous
  Country: US (occurrence: US)
  Receive Date: 20200517
  Receipt Date: 20200517
  Transmission Date: 20200714
  Serious: Yes (Other)
  Sender: FDA-Public Use
  Company Number: None

PATIENT
  Age: 70 Year
  Sex: Male
  Weight: 145 kg

DRUGS (12)
  1. ASPIRIN 81 MG [Concomitant]
     Active Substance: ASPIRIN
     Dates: start: 20200504
  2. INSULIN LISPRO [Concomitant]
     Active Substance: INSULIN LISPRO
     Dates: start: 20200507
  3. TOCILIZUMAB 400 MG [Concomitant]
     Dates: start: 20200505, end: 20200505
  4. METOPROLOL. [Concomitant]
     Active Substance: METOPROLOL
     Dates: start: 20200506
  5. HEPARIN/ENOXAPARIN SUBCUTANEOUS [Concomitant]
     Dates: start: 20200504
  6. ACETAMINOPHEN. [Concomitant]
     Active Substance: ACETAMINOPHEN
  7. LEVOTHYROXINE 150 MCG [Concomitant]
  8. TRADIPITANT. [Concomitant]
     Active Substance: TRADIPITANT
     Dates: start: 20200507
  9. REMDESIVIR. [Suspect]
     Active Substance: REMDESIVIR
     Indication: COVID-19
     Dosage: ?          OTHER FREQUENCY:ONCE, THEN 100MG;?
     Route: 041
     Dates: start: 20200509, end: 20200510
  10. ONDANSETRON [Concomitant]
     Active Substance: ONDANSETRON
  11. TRIMETHOBENZAMIDE 200 MG INJECTION [Concomitant]
     Dates: start: 20200508, end: 20200508
  12. ETHACRYNIC ACID. [Concomitant]
     Active Substance: ETHACRYNIC ACID
     Dates: start: 20200506, end: 20200506

REACTIONS (4)
  - Renal tubular necrosis [None]
  - Blood creatinine increased [None]
  - Sepsis [None]
  - Protein total increased [None]

NARRATIVE: CASE EVENT DATE: 20200511
